FAERS Safety Report 7820220-3 (Version None)
Quarter: 2011Q4

REPORT INFORMATION
  Report Type: 
  Country: None (occurrence: None)
  Receive Date: 20111018
  Receipt Date: 20111004
  Transmission Date: 20120403
  Serious: Yes (Death, Other)
  Sender: FDA-Public Use
  Company Number: CH-ELI_LILLY_AND_COMPANY-CH201110001569

PATIENT
  Age: 63 Year
  Sex: Male

DRUGS (5)
  1. CYMBALTA [Suspect]
  2. PAROXETINE HCL [Concomitant]
  3. ZOLPIDEM [Concomitant]
  4. XANAX [Concomitant]
  5. ZYPREXA [Suspect]

REACTIONS (3)
  - TOXICITY TO VARIOUS AGENTS [None]
  - INTENTIONAL OVERDOSE [None]
  - COMPLETED SUICIDE [None]
